FAERS Safety Report 8557364 (Version 3)
Quarter: 2013Q2

REPORT INFORMATION
  Report Type: Report from Study
  Country: AR (occurrence: AR)
  Receive Date: 20120511
  Receipt Date: 20130510
  Transmission Date: 20140414
  Serious: Yes (Hospitalization, Other)
  Sender: FDA-Public Use
  Company Number: PHHY2011AR73242

PATIENT
  Age: 74 Year
  Sex: Male

DRUGS (1)
  1. TASIGNA [Suspect]
     Indication: CHRONIC MYELOID LEUKAEMIA
     Dosage: 800 MG,DAILY
     Route: 048
     Dates: start: 20110801

REACTIONS (16)
  - Pneumonia [Recovering/Resolving]
  - Bronchitis [Recovering/Resolving]
  - Lung disorder [Recovering/Resolving]
  - Back pain [Recovering/Resolving]
  - Movement disorder [Recovering/Resolving]
  - Cardiac hypertrophy [Not Recovered/Not Resolved]
  - Cardiac disorder [Recovering/Resolving]
  - Agitation [Not Recovered/Not Resolved]
  - Dyspnoea [Unknown]
  - Rash pruritic [Recovering/Resolving]
  - Blood uric acid increased [Not Recovered/Not Resolved]
  - Pruritus generalised [Recovered/Resolved]
  - Blood cholesterol increased [Not Recovered/Not Resolved]
  - Hot flush [Recovering/Resolving]
  - Chest pain [Recovering/Resolving]
  - Abdominal discomfort [Not Recovered/Not Resolved]
